FAERS Safety Report 8295758-8 (Version None)
Quarter: 2012Q2

REPORT INFORMATION
  Report Type: 
  Country: None (occurrence: None)
  Receive Date: 20120416
  Receipt Date: 20120330
  Transmission Date: 20120825
  Serious: Yes (Hospitalization, Other)
  Sender: FDA-Public Use
  Company Number: JP-2012-14532

PATIENT
  Age: 76 Year
  Sex: Male
  Weight: 49 kg

DRUGS (18)
  1. LANIRAPID (METILDIGOXIN) [Concomitant]
  2. FERROMIA (FERROUS SODIUM CITRATE) [Concomitant]
  3. DIART (AZOSEMIDE) [Concomitant]
  4. SAMSCA [Concomitant]
  5. MAGMITT (MAGNESIUM OXIDE) [Concomitant]
  6. PLAVIX [Concomitant]
  7. RABEPRAZOLE SODIUM [Concomitant]
  8. CARVEDILOL [Concomitant]
  9. PREDNISOLONE [Concomitant]
  10. ALDACTONE [Concomitant]
  11. TRICHLORMETHIAZIDE [Concomitant]
  12. WARFARIN SODIUM [Concomitant]
  13. ZETIA [Concomitant]
  14. OPC-41061 (OPC-41061) TABLET [Suspect]
     Indication: CARDIAC FAILURE
     Dosage: ORAL
     Route: 048
     Dates: start: 20120309, end: 20120314
  15. AMARYL [Concomitant]
  16. SLOW-K [Concomitant]
  17. WARFARIN K (WARFARIN POTASSIUM) [Concomitant]
  18. ASPIRIN [Concomitant]

REACTIONS (11)
  - COLD SWEAT [None]
  - CARDIAC FAILURE [None]
  - BRADYARRHYTHMIA [None]
  - PULMONARY CONGESTION [None]
  - CONDITION AGGRAVATED [None]
  - BLOOD PRESSURE DECREASED [None]
  - MALAISE [None]
  - VENTRICULAR TACHYCARDIA [None]
  - HEADACHE [None]
  - ISCHAEMIC CARDIOMYOPATHY [None]
  - VISUAL ACUITY REDUCED [None]
